FAERS Safety Report 5288989-2 (Version None)
Quarter: 2007Q1

REPORT INFORMATION
  Report Type: 
  Country: None (occurrence: None)
  Receive Date: 20070118
  Receipt Date: 20061107
  Transmission Date: 20070707
  Serious: Yes (Other)
  Sender: FDA-Public Use
  Company Number: HQWYE012109NOV06

PATIENT
  Age: 88 Year
  Sex: Female
  Weight: 49.94 kg

DRUGS (3)
  1. ADVIL PM [Suspect]
     Indication: INSOMNIA
     Dosage: 2 CAPSULE 1X PER 1 DAY, ORAL
     Route: 048
     Dates: start: 20061106, end: 20061106
  2. ATENOLOL [Concomitant]
  3. LEVOXYL [Concomitant]

REACTIONS (1)
  - DRUG INEFFECTIVE [None]
